FAERS Safety Report 5728173-9 (Version None)
Quarter: 2008Q2

REPORT INFORMATION
  Report Type: 
  Country: None (occurrence: None)
  Receive Date: 20080430
  Receipt Date: 20080201
  Transmission Date: 20081010
  Serious: Yes (Death)
  Sender: FDA-Public Use
  Company Number: 023739

PATIENT
  Age: 58 Year
  Sex: Female

DRUGS (3)
  1. CITALOPRAM(CITALOPRAM HYDROBROMIDE) TABLET, 10MG [Suspect]
  2. MORPHINE SULFATE [Suspect]
  3. DOXEPIN HCL [Suspect]

REACTIONS (3)
  - CARDIAC ARREST [None]
  - RESPIRATORY ARREST [None]
  - THERAPEUTIC AGENT TOXICITY [None]
